FAERS Safety Report 10070208 (Version 1)
Quarter: 2014Q2

REPORT INFORMATION
  Report Type: Spontaneous
  Country: SE (occurrence: SE)
  Receive Date: 20140410
  Receipt Date: 20140410
  Transmission Date: 20141212
  Serious: Yes (Hospitalization)
  Sender: FDA-Public Use
  Company Number: SE-ASTRAZENECA-2014SE24251

PATIENT
  Age: 55 Year
  Sex: Female

DRUGS (5)
  1. SEROQUEL DEPOT [Suspect]
     Route: 048
  2. STESOLID [Suspect]
     Route: 065
  3. MIRTAZAPINE [Suspect]
     Route: 065
  4. VENLAFAXINE [Suspect]
     Route: 065
  5. PROPAVAN [Suspect]
     Route: 065

REACTIONS (2)
  - Poisoning [Recovered/Resolved]
  - Suicidal ideation [Recovered/Resolved]
